FAERS Safety Report 8270094-4 (Version None)
Quarter: 2012Q2

REPORT INFORMATION
  Report Type: 
  Country: None (occurrence: None)
  Receive Date: 20120410
  Receipt Date: 20120328
  Transmission Date: 20120825
  Serious: Yes (Hospitalization, Other)
  Sender: FDA-Public Use
  Company Number: FR-UCBSA-049690

PATIENT
  Age: 66 Year
  Sex: Male

DRUGS (5)
  1. STALEVO 100 [Concomitant]
     Indication: PARKINSON'S DISEASE
     Route: 048
     Dates: start: 20100101
  2. MADOPAR DISPERSIBLE [Concomitant]
     Indication: PARKINSON'S DISEASE
     Route: 048
     Dates: start: 20100101
  3. NEUPRO [Suspect]
     Indication: PARKINSON'S DISEASE
     Route: 062
     Dates: end: 20120227
  4. NEUPRO [Suspect]
     Route: 062
     Dates: start: 20110712
  5. AMANTADINE HCL [Concomitant]
     Indication: PARKINSON'S DISEASE
     Route: 048
     Dates: start: 20110101

REACTIONS (2)
  - HYPERSEXUALITY [None]
  - DOPAMINE DYSREGULATION SYNDROME [None]
